FAERS Safety Report 13658473 (Version 3)
Quarter: 2017Q4

REPORT INFORMATION
  Report Type: Spontaneous
  Country: US (occurrence: US)
  Receive Date: 20170616
  Receipt Date: 20171013
  Transmission Date: 20180320
  Serious: No
  Sender: FDA-Public Use
  Company Number: US-PFIZER INC-2017256004

PATIENT
  Age: 62 Year
  Sex: Male
  Weight: 104.3 kg

DRUGS (13)
  1. KLONOPIN [Interacting]
     Active Substance: CLONAZEPAM
     Indication: ANXIETY
     Dosage: 1 MG, DAILY, DIVIDED INTO 4 DOSES
  2. LATUDA [Concomitant]
     Active Substance: LURASIDONE HYDROCHLORIDE
     Indication: PSYCHIATRIC SYMPTOM
     Dosage: 60 MG, 1X/DAY
     Route: 048
  3. BABY ASPIRIN [Concomitant]
     Active Substance: ASPIRIN
     Indication: STENOSIS
  4. LEVOTHYROXINE. [Concomitant]
     Active Substance: LEVOTHYROXINE
     Indication: HYPOTHYROIDISM
     Dosage: 75 UG, 1X/DAY
     Route: 048
  5. LYRICA [Suspect]
     Active Substance: PREGABALIN
     Indication: NEUROPATHY PERIPHERAL
     Dosage: 150 MG, 2X/DAY
     Route: 048
     Dates: start: 20170531
  6. ATORVASTATIN [Concomitant]
     Active Substance: ATORVASTATIN
     Indication: BLOOD CHOLESTEROL ABNORMAL
     Dosage: 10 MG, 1X/DAY
     Route: 048
  7. BUPROPION XL [Concomitant]
     Active Substance: BUPROPION
     Indication: DEPRESSION
     Dosage: 300 MG, 1X/DAY
     Route: 048
  8. LYRICA [Interacting]
     Active Substance: PREGABALIN
     Indication: NEURALGIA
  9. PROPRANOLOL [Concomitant]
     Active Substance: PROPRANOLOL HYDROCHLORIDE
     Indication: TREMOR
     Dosage: 20 MG, 2X/DAY
     Route: 048
  10. LITHIUM. [Concomitant]
     Active Substance: LITHIUM
     Indication: MOOD SWINGS
     Dosage: 300 MG, DAILY (IN THE MORNING)
  11. LITHIUM. [Concomitant]
     Active Substance: LITHIUM
     Dosage: 600 MG, DAILY (IN THE EVENING)
  12. SILDENAFIL. [Concomitant]
     Active Substance: SILDENAFIL
     Indication: ERECTILE DYSFUNCTION
     Dosage: 5 DF, AS NEEDED
  13. BABY ASPIRIN [Concomitant]
     Active Substance: ASPIRIN
     Indication: PROSTATE CANCER
     Dosage: 81 MG, 1X/DAY
     Route: 048

REACTIONS (8)
  - Cognitive disorder [Recovered/Resolved]
  - Coordination abnormal [Recovered/Resolved]
  - Motor dysfunction [Recovered/Resolved]
  - Dysarthria [Recovered/Resolved]
  - Drug ineffective [Unknown]
  - Drug interaction [Unknown]
  - Condition aggravated [Unknown]
  - Fatigue [Recovered/Resolved]
